FAERS Safety Report 6706852-4 (Version None)
Quarter: 2010Q2

REPORT INFORMATION
  Report Type: 
  Country: None (occurrence: None)
  Receive Date: 20100430
  Receipt Date: 20100430
  Transmission Date: 20101027
  Serious: Yes (Hospitalization)
  Sender: FDA-Public Use
  Company Number: None

PATIENT
  Sex: Female
  Weight: 68.6 kg

DRUGS (8)
  1. DRONEDARONE HCL [Suspect]
     Indication: ATRIAL FIBRILLATION
     Dosage: 400 BID PO
     Route: 048
     Dates: start: 20100413, end: 20100421
  2. WARFARIN SODIUM [Suspect]
  3. COREG [Concomitant]
  4. ASPIRIN [Concomitant]
  5. TORSEMIDE [Concomitant]
  6. ALDACTONE [Concomitant]
  7. COLCHICINE [Concomitant]
  8. ALLOPURINOL [Concomitant]

REACTIONS (4)
  - CARDIAC FAILURE [None]
  - DRUG INTERACTION [None]
  - INTERNATIONAL NORMALISED RATIO INCREASED [None]
  - RENAL FAILURE ACUTE [None]
